FAERS Safety Report 20465286 (Version 1)
Quarter: 2022Q1

REPORT INFORMATION
  Report Type: Spontaneous
  Country: US (occurrence: US)
  Receive Date: 20220211
  Receipt Date: 20220211
  Transmission Date: 20220423
  Serious: Yes (Death, Other)
  Sender: FDA-Public Use
  Company Number: US-NOVARTISPH-NVSC2022US032254

PATIENT
  Age: 58 Year
  Sex: Male

DRUGS (3)
  1. RANITIDINE [Suspect]
     Active Substance: RANITIDINE
     Indication: Gastric ulcer
     Dosage: 150 MG,300 MG,,DAILY,
     Route: 048
     Dates: start: 198301, end: 200201
  2. RANITIDINE [Suspect]
     Active Substance: RANITIDINE
     Indication: Gastric ulcer
     Dosage: 150 MG,300 MG,,DAILY,
     Route: 048
     Dates: start: 198301, end: 200201
  3. RANITIDINE [Suspect]
     Active Substance: RANITIDINE
     Indication: Gastric ulcer
     Dosage: ,,,UNKNOWN AT THIS TIME,,DAILY,
     Route: 048
     Dates: start: 198301, end: 200201

REACTIONS (3)
  - Oesophageal carcinoma [Unknown]
  - Death [Fatal]
  - Incorrect dose administered [Unknown]

NARRATIVE: CASE EVENT DATE: 20160301
